FAERS Safety Report 8232720-5 (Version None)
Quarter: 2012Q1

REPORT INFORMATION
  Report Type: 
  Country: None (occurrence: None)
  Receive Date: 20120323
  Receipt Date: 20120313
  Transmission Date: 20120608
  Serious: Yes (Hospitalization, Other)
  Sender: FDA-Public Use
  Company Number: US-ASTRAZENECA-2012SE07195

PATIENT
  Age: 24534 Day
  Sex: Female
  Weight: 101.2 kg

DRUGS (25)
  1. METOPROLOL TARTRATE [Suspect]
  2. METOPROLOL TARTRATE [Suspect]
     Route: 048
     Dates: start: 20120126
  3. GLIMEPIRIDE [Concomitant]
  4. BRILINTA [Suspect]
     Route: 048
     Dates: start: 20120112, end: 20120126
  5. METOPROLOL TARTRATE [Suspect]
     Dates: start: 20120117
  6. AMLODIPINE BESYLATE [Concomitant]
     Indication: BLOOD PRESSURE MANAGEMENT
     Route: 048
  7. METOPROLOL TARTRATE [Suspect]
     Dates: start: 20120130
  8. HUMALOG [Concomitant]
     Dosage: 100 UNIT/ML, 5 UNITS  AT DINNER
  9. ASPIRIN [Concomitant]
  10. LOVASTATIN [Concomitant]
  11. POTASSIUM CHLORIDE [Concomitant]
  12. LASIX [Concomitant]
     Route: 048
  13. METOPROLOL TARTRATE [Suspect]
     Dates: start: 20120130, end: 20120214
  14. HYDROXYCHLOROQUINE SULFATE [Concomitant]
  15. METFORMIN HCL [Concomitant]
  16. TRAMADOL HCL [Concomitant]
  17. NITROGLYCERIN [Concomitant]
     Dosage: 0.4 MG/HR 24 HOUR, 1 PATCH EVERY DAY - REMOVE AT BEDTIME
     Route: 062
  18. BRIMONIDINE TARTRATE [Concomitant]
  19. RANITIDINE AND DIET MANAGE PROD [Concomitant]
  20. VITAMIN D [Concomitant]
  21. LEVOTHYROXINE SODIUM [Concomitant]
  22. NITROSTAT [Concomitant]
     Indication: CHEST PAIN
  23. LANTUS [Concomitant]
     Dosage: 100 UNIT/ML, 20 UNITS IN EVENING
  24. LOSARTAN POTASSIUM [Concomitant]
     Route: 048
  25. EFFIENT [Concomitant]

REACTIONS (5)
  - BRADYCARDIA [None]
  - ARRHYTHMIA [None]
  - DIZZINESS [None]
  - DYSPNOEA [None]
  - ATRIOVENTRICULAR BLOCK [None]
